FAERS Safety Report 25224514 (Version 1)
Quarter: 2025Q2

REPORT INFORMATION
  Report Type: Spontaneous
  Country: US (occurrence: None)
  Receive Date: 20250421
  Receipt Date: 20250421
  Transmission Date: 20250716
  Serious: No
  Sender: FDA-CTU
  Company Number: None

PATIENT
  Age: 47 Year
  Sex: Male
  Weight: 78.75 kg

DRUGS (4)
  1. QUVIVIQ [Suspect]
     Active Substance: DARIDOREXANT
     Indication: Insomnia
     Dates: start: 20250407, end: 20250421
  2. GABAPENTIN [Concomitant]
     Active Substance: GABAPENTIN
  3. PRISTIQ EXTENDED-RELEASE [Concomitant]
     Active Substance: DESVENLAFAXINE SUCCINATE
  4. BUPROPION [Concomitant]
     Active Substance: BUPROPION

REACTIONS (1)
  - Poor quality sleep [None]

NARRATIVE: CASE EVENT DATE: 20250420
